FAERS Safety Report 8262046-5 (Version None)
Quarter: 2012Q2

REPORT INFORMATION
  Report Type: 
  Country: None (occurrence: None)
  Receive Date: 20120402
  Receipt Date: 20120321
  Transmission Date: 20120825
  Serious: Yes (Hospitalization)
  Sender: FDA-Public Use
  Company Number: 2012-018033

PATIENT
  Age: 73 Year
  Sex: Male
  Weight: 65 kg

DRUGS (4)
  1. PILSICAINIDE HYDROCHLORIDE (PILSICAINIDE HYDROCHLORIDE) [Concomitant]
  2. ASPIRIN [Suspect]
     Dosage: DAILY DOSE 100 MG, ORAL
     Route: 048
     Dates: start: 20070101
  3. NICORANDIL (NICORANDIL) [Concomitant]
  4. NITRENDIPINE (NITRENDIPINE) [Concomitant]

REACTIONS (1)
  - VASCULAR PSEUDOANEURYSM [None]
